FAERS Safety Report 6359553-9 (Version None)
Quarter: 2009Q3

REPORT INFORMATION
  Report Type: 
  Country: None (occurrence: None)
  Receive Date: 20090917
  Receipt Date: 20090914
  Transmission Date: 20100115
  Serious: Yes (Hospitalization)
  Sender: FDA-Public Use
  Company Number: US-ELI_LILLY_AND_COMPANY-US200909003054

PATIENT
  Sex: Male

DRUGS (1)
  1. HUMALOG [Suspect]
     Dosage: UNK, AS NEEDED
     Dates: start: 20060101

REACTIONS (2)
  - CONSTIPATION [None]
  - CORONARY ARTERY DISEASE [None]
